FAERS Safety Report 14211208 (Version 1)
Quarter: 2017Q4

REPORT INFORMATION
  Report Type: Spontaneous
  Country: US (occurrence: None)
  Receive Date: 20171121
  Receipt Date: 20171121
  Transmission Date: 20180321
  Serious: No
  Sender: FDA-Public Use
  Company Number: None

PATIENT
  Age: 95 Year
  Sex: Female
  Weight: 56.7 kg

DRUGS (2)
  1. ONE-A-DAY NOS [Concomitant]
     Active Substance: MINERALS\VITAMINS
  2. MELOXICAM 15MG TABLET [Suspect]
     Active Substance: MELOXICAM
     Indication: PELVIC FRACTURE
     Dosage: 1 PILL
     Route: 048
     Dates: start: 20171019, end: 20171023

REACTIONS (2)
  - Joint swelling [None]
  - Peripheral swelling [None]

NARRATIVE: CASE EVENT DATE: 20171023
